FAERS Safety Report 25196521 (Version 1)
Quarter: 2025Q2

REPORT INFORMATION
  Report Type: Spontaneous
  Country: CA (occurrence: CA)
  Receive Date: 20250415
  Receipt Date: 20250415
  Transmission Date: 20250716
  Serious: Yes (Death, Other)
  Sender: TEVA
  Company Number: CA-TEVA-VS-3321828

PATIENT
  Age: 64 Year
  Sex: Female

DRUGS (4)
  1. DONEPEZIL HYDROCHLORIDE [Suspect]
     Active Substance: DONEPEZIL HYDROCHLORIDE
     Indication: Corticobasal degeneration
     Route: 065
  2. MEMANTINE HYDROCHLORIDE [Suspect]
     Active Substance: MEMANTINE HYDROCHLORIDE
     Indication: Corticobasal degeneration
     Route: 065
  3. RIVASTIGMINE [Suspect]
     Active Substance: RIVASTIGMINE
     Indication: Corticobasal degeneration
     Route: 065
  4. GALANTAMINE [Suspect]
     Active Substance: GALANTAMINE
     Indication: Corticobasal degeneration
     Route: 065

REACTIONS (3)
  - Condition aggravated [Fatal]
  - Drug ineffective [Fatal]
  - Off label use [Fatal]
